FAERS Safety Report 9970864 (Version 1)
Quarter: 2014Q1

REPORT INFORMATION
  Report Type: Report from Study
  Country: PR (occurrence: PR)
  Receive Date: 20140306
  Receipt Date: 20140306
  Transmission Date: 20141002
  Serious: No
  Sender: FDA-Public Use
  Company Number: PR-ABBVIE-13P-131-1152052-00

PATIENT
  Age: 26 Year
  Sex: Female
  Weight: 63.56 kg

DRUGS (5)
  1. HUMIRA [Suspect]
     Indication: CROHN^S DISEASE
     Route: 058
     Dates: start: 20130921
  2. PREDNISONE [Concomitant]
     Indication: CROHN^S DISEASE
     Route: 048
     Dates: start: 20130508
  3. PREDNISONE [Concomitant]
     Route: 048
     Dates: start: 20130508
  4. PROTONIX [Concomitant]
     Indication: CROHN^S DISEASE
     Route: 048
     Dates: start: 201211
  5. MULTIVITAMIN [Concomitant]
     Indication: THALASSAEMIA BETA
     Dates: start: 2009

REACTIONS (2)
  - Hyperhidrosis [Recovered/Resolved]
  - Injection site pain [Recovered/Resolved]
